FAERS Safety Report 17791843 (Version 4)
Quarter: 2020Q3

REPORT INFORMATION
  Report Type: Spontaneous
  Country: US (occurrence: US)
  Receive Date: 20200515
  Receipt Date: 20200831
  Transmission Date: 20201102
  Serious: No
  Sender: FDA-Public Use
  Company Number: US-PFIZER INC-2020192757

PATIENT
  Age: 79 Year
  Sex: Female
  Weight: 68.04 kg

DRUGS (2)
  1. LATANOPROST. [Suspect]
     Active Substance: LATANOPROST
     Indication: GLAUCOMA
     Dosage: UNK, ONCE A DAY (1 DROP EACH EYE EVERY EVENING)
  2. LATANOPROST. [Suspect]
     Active Substance: LATANOPROST
     Dosage: UNK, ONCE A DAY (1 DROP EACH EYE EVERY EVENING)

REACTIONS (6)
  - Accidental exposure to product [Unknown]
  - Poor quality product administered [Unknown]
  - Meniscus injury [Unknown]
  - Incorrect dose administered [Unknown]
  - Product container issue [Unknown]
  - Exposure via skin contact [Unknown]

NARRATIVE: CASE EVENT DATE: 20200113
